FAERS Safety Report 17228749 (Version 2)
Quarter: 2020Q1

REPORT INFORMATION
  Report Type: Spontaneous
  Country: US (occurrence: US)
  Receive Date: 20200103
  Receipt Date: 20200110
  Transmission Date: 20200409
  Serious: No
  Sender: FDA-Public Use
  Company Number: US-HORIZON-KRY-1220-2019

PATIENT
  Sex: Male

DRUGS (1)
  1. KRYSTEXXA [Suspect]
     Active Substance: PEGLOTICASE
     Indication: GOUT
     Dosage: 8MG EVERY 2 WEEKS
     Dates: start: 20191209

REACTIONS (2)
  - Gout [Not Recovered/Not Resolved]
  - Joint fluid drainage [Unknown]

NARRATIVE: CASE EVENT DATE: 201912
